FAERS Safety Report 8872652 (Version 1)
Quarter: 2012Q4

REPORT INFORMATION
  Report Type: Report from Study
  Country: US (occurrence: SN)
  Receive Date: 20121029
  Receipt Date: 20121029
  Transmission Date: 20130627
  Serious: Yes (Other)
  Sender: FDA-Public Use
  Company Number: US-GILEAD-2012-0063361

PATIENT
  Age: 32 Year
  Sex: Female

DRUGS (3)
  1. EMTRICITABINE/TENOFOVIR DISOPROXIL FUMARATE [Suspect]
     Indication: HIV INFECTION
     Dosage: 1 DF, QD
     Route: 048
     Dates: start: 20110308
  2. DARUNAVIR [Suspect]
     Indication: HIV INFECTION
     Dosage: 800 mg, QD
     Route: 048
     Dates: start: 20110308
  3. ZIDOVUDINE [Suspect]
     Indication: HIV INFECTION
     Dosage: 100 mg, QD
     Route: 048
     Dates: start: 20110308

REACTIONS (1)
  - Abortion spontaneous [Recovered/Resolved]
